FAERS Safety Report 13662898 (Version 1)
Quarter: 2017Q2

REPORT INFORMATION
  Report Type: Spontaneous
  Country: US (occurrence: US)
  Receive Date: 20170616
  Receipt Date: 20170616
  Transmission Date: 20170830
  Serious: Yes (Other)
  Sender: FDA-Public Use
  Company Number: None

PATIENT
  Age: 76 Year
  Sex: Male
  Weight: 67.95 kg

DRUGS (10)
  1. SPIRONOLACTONE. [Concomitant]
     Active Substance: SPIRONOLACTONE
  2. ASPIRIN. [Concomitant]
     Active Substance: ASPIRIN
  3. TARCEVA [Suspect]
     Active Substance: ERLOTINIB HYDROCHLORIDE
     Indication: LUNG NEOPLASM MALIGNANT
     Route: 048
     Dates: start: 20160608, end: 20160616
  4. PROAIR HFA [Concomitant]
     Active Substance: ALBUTEROL SULFATE
  5. METFORMIN [Concomitant]
     Active Substance: METFORMIN HYDROCHLORIDE
  6. LISINOPRIL. [Concomitant]
     Active Substance: LISINOPRIL
  7. FUROSEMIDE. [Concomitant]
     Active Substance: FUROSEMIDE
  8. ATORVASTATIN [Concomitant]
     Active Substance: ATORVASTATIN
  9. FINASTERIDE. [Concomitant]
     Active Substance: FINASTERIDE
  10. CARVEDILOL. [Concomitant]
     Active Substance: CARVEDILOL

REACTIONS (2)
  - Disease progression [None]
  - Full blood count decreased [None]
